FAERS Safety Report 5685323-0 (Version None)
Quarter: 2008Q1

REPORT INFORMATION
  Report Type: 
  Country: None (occurrence: None)
  Receive Date: 20080328
  Receipt Date: 20080317
  Transmission Date: 20080703
  Serious: Yes (Other)
  Sender: FDA-Public Use
  Company Number: US-PFIZER INC-2008024744

PATIENT
  Sex: Female
  Weight: 55.454 kg

DRUGS (2)
  1. CHANTIX [Suspect]
     Indication: SMOKING CESSATION THERAPY
     Dates: start: 20080210, end: 20080314
  2. VITAMIN CAP [Concomitant]

REACTIONS (10)
  - CHEST DISCOMFORT [None]
  - CHILLS [None]
  - CONVULSION [None]
  - DRUG DOSE OMISSION [None]
  - DYSSTASIA [None]
  - HEART RATE INCREASED [None]
  - HYPERHIDROSIS [None]
  - NAUSEA [None]
  - PALPITATIONS [None]
  - TREMOR [None]
